FAERS Safety Report 13841136 (Version 1)
Quarter: 2017Q3

REPORT INFORMATION
  Report Type: Spontaneous
  Country: GB (occurrence: GB)
  Receive Date: 20170807
  Receipt Date: 20170807
  Transmission Date: 20171127
  Serious: Yes (Other)
  Sender: FDA-Public Use
  Company Number: GB-PFIZER INC-2017339571

PATIENT
  Age: 33 Year
  Sex: Female

DRUGS (9)
  1. ROCURONIUM BROMIDE. [Suspect]
     Active Substance: ROCURONIUM BROMIDE
     Indication: ENDOTRACHEAL INTUBATION
     Dosage: 70 MG, UNK
  2. METRONIDAZOLE. [Concomitant]
     Active Substance: METRONIDAZOLE
     Indication: RHINITIS
     Dosage: 500 MG, (8-HOURLY)
     Route: 042
  3. CEFUROXIME. [Concomitant]
     Active Substance: CEFUROXIME
     Indication: RHINITIS
     Dosage: 1.5 G, (8-HOURLY)
     Route: 042
  4. PROPESS [Concomitant]
     Active Substance: DINOPROSTONE
     Indication: LABOUR INDUCTION
     Dosage: 10 MG, UNK
  5. MAGNESIUM SULFATE. [Concomitant]
     Active Substance: MAGNESIUM SULFATE
     Indication: PRE-ECLAMPSIA
     Dosage: (4 G IV BOLUS FOLLOWED BY 1 G/H INFUSION FOR 24 H)
     Route: 042
  6. FENTANYL. [Suspect]
     Active Substance: FENTANYL
     Indication: ENDOTRACHEAL INTUBATION
     Dosage: 150 UG, UNK
  7. OXYGEN. [Concomitant]
     Active Substance: OXYGEN
     Indication: HYPOXIA
     Dosage: 15 L/MIN
  8. PROPOFOL HOSPIRA [Suspect]
     Active Substance: PROPOFOL
     Indication: ENDOTRACHEAL INTUBATION
     Dosage: 50 MG, UNK
  9. PROPOFOL HOSPIRA [Suspect]
     Active Substance: PROPOFOL
     Dosage: 50 MG, UNK

REACTIONS (1)
  - Cardiac arrest [Recovered/Resolved]
